FAERS Safety Report 10751504 (Version 1)
Quarter: 2015Q1

REPORT INFORMATION
  Report Type: Spontaneous
  Country: PK (occurrence: None)
  Receive Date: 20150128
  Receipt Date: 20150128
  Transmission Date: 20150721
  Serious: Yes (Other)
  Sender: FDA-Public Use
  Company Number: KAD201501-000074

PATIENT
  Age: 33 Year
  Sex: Male

DRUGS (2)
  1. INTERFERON ALFACON-1 [Suspect]
     Active Substance: INTERFERON ALFACON-1
     Indication: HEPATITIS C
     Dosage: 9 MU/WEEK
  2. RIBAVIRIN (RIBAVIRIN) [Suspect]
     Active Substance: RIBAVIRIN
     Indication: HEPATITIS C

REACTIONS (2)
  - Retinopathy [None]
  - Optic neuropathy [None]
